FAERS Safety Report 6555136-6 (Version None)
Quarter: 2010Q1

REPORT INFORMATION
  Report Type: 
  Country: None (occurrence: None)
  Receive Date: 20100126
  Receipt Date: 20100126
  Transmission Date: 20100710
  Serious: Yes (Hospitalization)
  Sender: FDA-Public Use
  Company Number: None

PATIENT
  Sex: Female
  Weight: 50.3493 kg

DRUGS (4)
  1. DASATINIB 50 MG TABLETS, BRISTOLS-MYERS SQUIBB [Suspect]
     Indication: BREAST CANCER
     Dosage: 100 MG PO DAILY
     Route: 048
     Dates: start: 20091208, end: 20091229
  2. DOCETAXEL [Suspect]
     Indication: BREAST CANCER
     Dosage: 100 MG/M2 IV Q 3 WKS
     Route: 042
     Dates: start: 20100108
  3. DARVOCET [Concomitant]
  4. DEXAMETHASONE [Concomitant]

REACTIONS (3)
  - BREAST ABSCESS [None]
  - NEUTROPENIA [None]
  - STAPHYLOCOCCAL ABSCESS [None]
